FAERS Safety Report 6970954-8 (Version None)
Quarter: 2010Q3

REPORT INFORMATION
  Report Type: 
  Country: None (occurrence: None)
  Receive Date: 20100908
  Receipt Date: 20100902
  Transmission Date: 20110219
  Serious: Yes (Death, Other)
  Sender: FDA-Public Use
  Company Number: DE-JNJFOC-20100509076

PATIENT
  Sex: Male

DRUGS (3)
  1. DORIBAX [Suspect]
     Indication: PNEUMONIA
     Dosage: TOTAL DOSE: 1500 MG PER DAY
     Route: 041
  2. CATECHOLAMINES NOS [Concomitant]
     Indication: SEPSIS
     Route: 042
  3. UNKNOWN MEDICATION [Concomitant]
     Indication: PRODUCT USED FOR UNKNOWN INDICATION
     Route: 065

REACTIONS (3)
  - PATHOGEN RESISTANCE [None]
  - PSEUDOMONAS INFECTION [None]
  - PULMONARY SEPSIS [None]
